FAERS Safety Report 9255319 (Version 1)
Quarter: 2013Q2

REPORT INFORMATION
  Report Type: Spontaneous
  Country: US (occurrence: None)
  Receive Date: 20130423
  Receipt Date: 20130423
  Transmission Date: 20140414
  Serious: Yes (Hospitalization)
  Sender: FDA-Public Use
  Company Number: None

PATIENT
  Age: 88 Year
  Sex: Male
  Weight: 73.9 kg

DRUGS (2)
  1. DIGOXIN [Suspect]
     Route: 048
     Dates: start: 20120906, end: 20130420
  2. CARVEDILOL [Suspect]
     Indication: CARDIAC FAILURE CONGESTIVE
     Route: 048
     Dates: start: 20130415, end: 20130421

REACTIONS (4)
  - Fatigue [None]
  - Dyspnoea [None]
  - Bradycardia [None]
  - Ventricular extrasystoles [None]
